FAERS Safety Report 13870146 (Version 1)
Quarter: 2017Q3

REPORT INFORMATION
  Report Type: Spontaneous
  Country: TR (occurrence: TR)
  Receive Date: 20170815
  Receipt Date: 20170815
  Transmission Date: 20171127
  Serious: Yes (Death)
  Sender: FDA-Public Use
  Company Number: TR-009507513-1708TUR006376

PATIENT
  Age: 15 Year
  Sex: Male

DRUGS (8)
  1. CEFTAZIDIME. [Concomitant]
     Active Substance: CEFTAZIDIME
     Route: 033
  2. CASPOFUNGIN ACETATE. [Suspect]
     Active Substance: CASPOFUNGIN ACETATE
     Indication: CEREBRAL ASPERGILLOSIS
  3. AMPHOTERICIN B. [Suspect]
     Active Substance: AMPHOTERICIN B
     Indication: CEREBRAL ASPERGILLOSIS
  4. AMPHOTERICIN B. [Suspect]
     Active Substance: AMPHOTERICIN B
     Indication: BRONCHOPULMONARY ASPERGILLOSIS
  5. VANCOMYCIN [Concomitant]
     Active Substance: VANCOMYCIN
     Route: 033
  6. CEFTRIAXONE. [Concomitant]
     Active Substance: CEFTRIAXONE
     Route: 042
  7. CEFAZOLIN [Concomitant]
     Active Substance: CEFAZOLIN
     Indication: PERITONITIS
  8. CASPOFUNGIN ACETATE. [Suspect]
     Active Substance: CASPOFUNGIN ACETATE
     Indication: BRONCHOPULMONARY ASPERGILLOSIS

REACTIONS (1)
  - Drug ineffective [Fatal]
